FAERS Safety Report 11128074 (Version 2)
Quarter: 2015Q2

REPORT INFORMATION
  Report Type: Spontaneous
  Country: BY (occurrence: BY)
  Receive Date: 20150521
  Receipt Date: 20150529
  Transmission Date: 20150821
  Serious: Yes (Hospitalization)
  Sender: FDA-Public Use
  Company Number: BY-PFIZER INC-2015157518

PATIENT
  Age: 35 Year
  Sex: Female

DRUGS (3)
  1. FOLIC ACID. [Concomitant]
     Active Substance: FOLIC ACID
     Dosage: UNK
     Dates: start: 201504
  2. MAGNE B6 [Concomitant]
     Active Substance: MAGNESIUM\PYRIDOXINE
     Dosage: UNK
     Dates: start: 201504
  3. FRAGMIN [Suspect]
     Active Substance: DALTEPARIN SODIUM
     Indication: PROPHYLAXIS
     Dosage: 2500 IU, 1X/DAY, SUBCUTENEOUSLY IN ABDOMEN AREA
     Route: 058
     Dates: start: 20150420

REACTIONS (2)
  - Product use issue [Unknown]
  - Abortion threatened [Recovered/Resolved]

NARRATIVE: CASE EVENT DATE: 20150420
